FAERS Safety Report 5249781-8 (Version None)
Quarter: 2007Q1

REPORT INFORMATION
  Report Type: 
  Country: None (occurrence: None)
  Receive Date: 20070228
  Receipt Date: 20070108
  Transmission Date: 20070707
  Serious: No
  Sender: FDA-Public Use
  Company Number: US-GLAXOSMITHKLINE-A0631145A

PATIENT
  Sex: Male
  Weight: 87.3 kg

DRUGS (1)
  1. IMITREX [Suspect]
     Dosage: 6MG SINGLE DOSE
     Route: 058
     Dates: start: 20061211, end: 20061211

REACTIONS (1)
  - DRUG ADMINISTRATION ERROR [None]
